FAERS Safety Report 17236849 (Version 1)
Quarter: 2020Q1

REPORT INFORMATION
  Report Type: Spontaneous
  Country: CN (occurrence: CN)
  Receive Date: 20200106
  Receipt Date: 20200106
  Transmission Date: 20200409
  Serious: Yes (Other)
  Sender: FDA-Public Use
  Company Number: CN-JUBILANT CADISTA PHARMACEUTICALS-2019JUB00460

PATIENT
  Age: 37 Year
  Sex: Female

DRUGS (1)
  1. CARBAMAZEPINE. [Suspect]
     Active Substance: CARBAMAZEPINE
     Indication: SEIZURE
     Dosage: 400 MG, 2X/DAY
     Route: 065
     Dates: start: 200105, end: 200509

REACTIONS (2)
  - Selective IgA immunodeficiency [Recovered/Resolved]
  - B-cell aplasia [Recovered/Resolved]
